FAERS Safety Report 7636964-2 (Version None)
Quarter: 2011Q3

REPORT INFORMATION
  Report Type: 
  Country: None (occurrence: None)
  Receive Date: 20110726
  Receipt Date: 20110724
  Transmission Date: 20111222
  Serious: Yes (Hospitalization)
  Sender: FDA-Public Use
  Company Number: US-B.I. PHARMACEUTICALS,INC./RIDGEFIELD-2011-BP-18356BP

PATIENT

DRUGS (2)
  1. PRADAXA [Suspect]
  2. PLAVIX [Concomitant]

REACTIONS (2)
  - FALL [None]
  - SPLENIC RUPTURE [None]
